FAERS Safety Report 16196005 (Version 1)
Quarter: 2019Q2

REPORT INFORMATION
  Report Type: Spontaneous
  Country: FR (occurrence: FR)
  Receive Date: 20190415
  Receipt Date: 20190415
  Transmission Date: 20190711
  Serious: Yes (Hospitalization, Other)
  Sender: FDA-Public Use
  Company Number: FR-AUROBINDO-AUR-APL-2019-019201

PATIENT

DRUGS (15)
  1. VANCOMYCINE [Suspect]
     Active Substance: VANCOMYCIN
     Indication: FEBRILE NEUTROPENIA
     Dosage: 3 GRAM
     Route: 042
     Dates: start: 20190211, end: 20190217
  2. ENDOXAN [Suspect]
     Active Substance: CYCLOPHOSPHAMIDE
     Indication: PROPHYLAXIS AGAINST TRANSPLANT REJECTION
     Dosage: 50 MILLIGRAM/KILOGRAM, ONCE A DAY
     Route: 042
     Dates: start: 20190210, end: 20190211
  3. THIOTEPA. [Suspect]
     Active Substance: THIOTEPA
     Indication: BONE MARROW CONDITIONING REGIMEN
     Dosage: 145 MILLIGRAM
     Route: 042
     Dates: start: 20190201, end: 20190201
  4. CEFTAZIDIME. [Suspect]
     Active Substance: CEFTAZIDIME
     Indication: FEBRILE NEUTROPENIA
     Dosage: 2 GRAM
     Route: 042
     Dates: start: 20190211, end: 20190217
  5. ONDANSETRON [Suspect]
     Active Substance: ONDANSETRON
     Indication: NAUSEA
     Dosage: 16 MILLIGRAM, ONCE A DAY
     Route: 042
     Dates: start: 20190210, end: 20190213
  6. IDARUBICIN HYDROCHLORIDE. [Suspect]
     Active Substance: IDARUBICIN HYDROCHLORIDE
     Indication: ACUTE MYELOID LEUKAEMIA
     Dosage: 15.1 MILLIGRAM, ONCE A DAY
     Route: 042
     Dates: start: 20180526, end: 20180530
  7. FLUDARABINE PHOSPHATE. [Suspect]
     Active Substance: FLUDARABINE PHOSPHATE
     Indication: BONE MARROW CONDITIONING REGIMEN
     Dosage: 72 MILLIGRAM, ONCE A DAY
     Route: 062
     Dates: start: 20190202, end: 20190205
  8. CHOLURSO [Suspect]
     Active Substance: URSODIOL
     Indication: PROPHYLAXIS
     Dosage: 1 DOSAGE FORM
     Route: 048
     Dates: start: 20190208, end: 20190219
  9. ENASIDENIB [Suspect]
     Active Substance: ENASIDENIB
     Indication: ACUTE MYELOID LEUKAEMIA
     Dosage: 100 MILLIGRAM, ONCE A DAY
     Route: 048
     Dates: start: 201810, end: 201901
  10. BUSULFAN. [Suspect]
     Active Substance: BUSULFAN
     Indication: BONE MARROW CONDITIONING REGIMEN
     Dosage: 259 MILLIGRAM, ONCE A DAY
     Route: 042
     Dates: start: 20190203, end: 20190204
  11. METRONIDAZOLE. [Suspect]
     Active Substance: METRONIDAZOLE
     Indication: FEBRILE NEUTROPENIA
     Dosage: 1500 MILLIGRAM, ONCE A DAY
     Route: 042
     Dates: start: 20190210
  12. CELLCEPT [Suspect]
     Active Substance: MYCOPHENOLATE MOFETIL\MYCOPHENOLATE MOFETIL HYDROCHLORIDE
     Indication: PROPHYLAXIS AGAINST TRANSPLANT REJECTION
     Dosage: 100 MILLIGRAM
     Route: 042
     Dates: start: 20190212
  13. CYTARABINE. [Suspect]
     Active Substance: CYTARABINE
     Indication: ACUTE MYELOID LEUKAEMIA
     Dosage: 190 MILLIGRAM, ONCE A DAY
     Route: 042
     Dates: start: 20180526, end: 20180531
  14. SANDIMMUN [Suspect]
     Active Substance: CYCLOSPORINE
     Indication: PROPHYLAXIS AGAINST TRANSPLANT REJECTION
     Dosage: 110 MILLIGRAM, ONCE A DAY
     Route: 042
     Dates: start: 20190212
  15. AZACITIDINE. [Suspect]
     Active Substance: AZACITIDINE
     Indication: ACUTE MYELOID LEUKAEMIA
     Dosage: 994 MILLIGRAM
     Route: 058
     Dates: start: 20180629, end: 20181020

REACTIONS (3)
  - Cardiac failure [Not Recovered/Not Resolved]
  - Cardiomyopathy [Not Recovered/Not Resolved]
  - Ejection fraction decreased [Not Recovered/Not Resolved]

NARRATIVE: CASE EVENT DATE: 20190213
